FAERS Safety Report 7556943-3 (Version None)
Quarter: 2011Q2

REPORT INFORMATION
  Report Type: 
  Country: None (occurrence: None)
  Receive Date: 20110620
  Receipt Date: 20110613
  Transmission Date: 20111010
  Serious: Yes (Death, Other)
  Sender: FDA-Public Use
  Company Number: AT-ROCHE-695760

PATIENT

DRUGS (2)
  1. LAPATINIB [Suspect]
     Route: 065
  2. CAPECITABINE [Suspect]
     Dosage: DAYS 1 TO 14, EVERY 21 DAYS
     Route: 048

REACTIONS (15)
  - DEATH [None]
  - ASTHENIA [None]
  - OVERDOSE [None]
  - HYPERBILIRUBINAEMIA [None]
  - EJECTION FRACTION DECREASED [None]
  - PULMONARY EMBOLISM [None]
  - PYREXIA [None]
  - NAUSEA [None]
  - INTERSTITIAL LUNG DISEASE [None]
  - VOMITING [None]
  - NEUTROPENIA [None]
  - PALMAR-PLANTAR ERYTHRODYSAESTHESIA SYNDROME [None]
  - MUCOSAL INFLAMMATION [None]
  - DIARRHOEA [None]
  - CHOLESTASIS [None]
